FAERS Safety Report 10418539 (Version 1)
Quarter: 2014Q3

REPORT INFORMATION
  Report Type: Spontaneous
  Country: US (occurrence: US)
  Receive Date: 20140829
  Receipt Date: 20140829
  Transmission Date: 20150326
  Serious: No
  Sender: FDA-Public Use
  Company Number: US-TARO-2014P1003196

PATIENT
  Sex: Female

DRUGS (5)
  1. HERBALS [Concomitant]
     Active Substance: HERBALS
  2. CLOBETASOL PROPIONATE OINTMENT USP 0.05% [Suspect]
     Active Substance: CLOBETASOL PROPIONATE
     Indication: PSORIASIS
     Dosage: QD
     Route: 061
     Dates: start: 2012
  3. CALCIPOTRIENE OINTMENT 0.005% [Suspect]
     Active Substance: CALCIPOTRIENE
     Indication: PSORIASIS
     Dosage: QD
     Route: 061
     Dates: start: 2012
  4. VITAMINS [Concomitant]
     Active Substance: VITAMINS
  5. UNSPECIFIED PRESCRIPTIONS [Concomitant]

REACTIONS (2)
  - Skin abrasion [Recovered/Resolved]
  - Product quality issue [Unknown]
